FAERS Safety Report 23402583 (Version 1)
Quarter: 2024Q1

REPORT INFORMATION
  Report Type: Spontaneous
  Country: US (occurrence: US)
  Receive Date: 20240115
  Receipt Date: 20240115
  Transmission Date: 20240410
  Serious: Yes (Hospitalization, Other)
  Sender: FDA-Public Use
  Company Number: US-002147023-NVSC2024US006305

PATIENT
  Age: 30 Year
  Sex: Male
  Weight: 75 kg

DRUGS (8)
  1. ENTRESTO [Suspect]
     Active Substance: SACUBITRIL\VALSARTAN
     Indication: Myocarditis
     Dosage: UNK
     Route: 065
  2. ENTRESTO [Suspect]
     Active Substance: SACUBITRIL\VALSARTAN
     Indication: Myopericarditis
  3. DAPAGLIFLOZIN [Suspect]
     Active Substance: DAPAGLIFLOZIN
     Indication: Myocarditis
     Dosage: UNK
     Route: 065
  4. DAPAGLIFLOZIN [Suspect]
     Active Substance: DAPAGLIFLOZIN
     Indication: Myopericarditis
  5. EPLERENONE [Suspect]
     Active Substance: EPLERENONE
     Indication: Myocarditis
     Route: 065
  6. EPLERENONE [Suspect]
     Active Substance: EPLERENONE
     Indication: Myopericarditis
  7. NEBIVOLOL [Suspect]
     Active Substance: NEBIVOLOL
     Indication: Myocarditis
     Route: 065
  8. NEBIVOLOL [Suspect]
     Active Substance: NEBIVOLOL
     Indication: Myopericarditis

REACTIONS (3)
  - Cardiac failure [Unknown]
  - Chest pain [Recovered/Resolved]
  - Chest discomfort [Recovering/Resolving]
